FAERS Safety Report 8316724-X (Version None)
Quarter: 2012Q2

REPORT INFORMATION
  Report Type: 
  Country: None (occurrence: None)
  Receive Date: 20120427
  Receipt Date: 20120419
  Transmission Date: 20120825
  Serious: Yes (Death)
  Sender: FDA-Public Use
  Company Number: US-AMGEN-USASP2012024931

PATIENT
  Age: 57 Year
  Sex: Male

DRUGS (1)
  1. ENBREL [Suspect]
     Indication: RHEUMATOID ARTHRITIS
     Dosage: UNK QWK
     Route: 058
     Dates: start: 20100809, end: 20101201

REACTIONS (3)
  - BACK PAIN [None]
  - SPINDLE CELL SARCOMA [None]
  - ROAD TRAFFIC ACCIDENT [None]
